FAERS Safety Report 10079954 (Version 1)
Quarter: 2014Q2

REPORT INFORMATION
  Report Type: Spontaneous
  Country: GB (occurrence: GB)
  Receive Date: 20140415
  Receipt Date: 20140415
  Transmission Date: 20141212
  Serious: Yes (Other)
  Sender: FDA-Public Use
  Company Number: PHHY2014GB042414

PATIENT
  Age: 78 Year
  Sex: Male

DRUGS (4)
  1. TAMSULOSIN [Suspect]
     Indication: URINARY RETENTION
     Dosage: 400 UG, QD
     Route: 048
     Dates: start: 20140303
  2. CLEXANE [Concomitant]
     Indication: PROPHYLAXIS
     Dosage: 40 MG, UNK
     Route: 058
  3. DOCUSATE [Concomitant]
     Dosage: 100 MG, TID
     Route: 048
  4. LAXIDO [Concomitant]
     Dosage: 1 DF, BID
     Route: 048

REACTIONS (2)
  - Lymphoedema [Unknown]
  - Pruritus [Unknown]
